FAERS Safety Report 14745543 (Version 1)
Quarter: 2018Q2

REPORT INFORMATION
  Report Type: Spontaneous
  Country: US (occurrence: US)
  Receive Date: 20180411
  Receipt Date: 20180411
  Transmission Date: 20180711
  Serious: Yes (Other)
  Sender: FDA-Public Use
  Company Number: US-INFO-000617

PATIENT
  Age: 47 Year
  Sex: Male

DRUGS (1)
  1. FLUCONAZOLE. [Suspect]
     Active Substance: FLUCONAZOLE
     Indication: COCCIDIOIDOMYCOSIS
     Dosage: HIGH-DOSE
     Route: 065

REACTIONS (2)
  - Hypertension [Recovered/Resolved]
  - Blood corticosterone abnormal [Recovered/Resolved]
